FAERS Safety Report 4688567-X (Version None)
Quarter: 2005Q2

REPORT INFORMATION
  Report Type: 
  Country: None (occurrence: None)
  Receive Date: 20050609
  Receipt Date: 20050531
  Transmission Date: 20051028
  Serious: Yes (Other)
  Sender: FDA-Public Use
  Company Number: 2005-05-2305

PATIENT
  Age: 64 Year
  Sex: Female

DRUGS (5)
  1. BETAMETHASONE [Suspect]
     Indication: UVEITIS
     Dosage: EYE
     Dates: start: 20030801
  2. RINDERON A (FRADIOMYCIN SULFATE/BETAMETHASONE SODIUM OPHTHALMIC SOLUTI [Suspect]
     Indication: UVEITIS
     Dosage: EYE
     Dates: start: 20030801
  3. BETAMETHASONE DIPROPIONATE [Suspect]
     Indication: VITREOUS OPACITIES
     Dosage: SUBCONJUNC
     Route: 057
     Dates: start: 20030801
  4. PREDNISOLONE [Suspect]
     Indication: UVEITIS
     Dosage: 20-10 MG/D ORAL
     Route: 048
     Dates: start: 20040101
  5. COLCHICINE FOR BEHCET'S DISEASE [Concomitant]

REACTIONS (7)
  - CONDITION AGGRAVATED [None]
  - DIABETES MELLITUS [None]
  - INJECTION SITE EXTRAVASATION [None]
  - RETINOPATHY [None]
  - SCOTOMA [None]
  - THYMOMA [None]
  - UVEITIS [None]
